FAERS Safety Report 8419234-4 (Version None)
Quarter: 2012Q2

REPORT INFORMATION
  Report Type: 
  Country: None (occurrence: None)
  Receive Date: 20120530
  Receipt Date: 20120517
  Transmission Date: 20120825
  Serious: Yes (Hospitalization)
  Sender: FDA-Public Use
  Company Number: DSU-2011-05898

PATIENT
  Age: 46 Year
  Sex: Female
  Weight: 115 kg

DRUGS (5)
  1. TIBOLONE (TIBOLONE) [Concomitant]
  2. CITALOPRAM HYDROBROMIDE [Concomitant]
  3. ATENOLOL [Concomitant]
  4. CLONAZEPAM [Concomitant]
  5. OLMESARTAN MEDOXOMIL AND HYDROCHLOROTHIZIDE [Suspect]
     Indication: HYPERTENSION
     Dosage: 20/12.5 MG, QD, PER ORAL
     Route: 048
     Dates: start: 20090902, end: 20111001

REACTIONS (8)
  - DIARRHOEA [None]
  - OSTEOARTHRITIS [None]
  - GASTRITIS [None]
  - NECROSIS [None]
  - ENTERITIS [None]
  - MYALGIA [None]
  - CHRONIC HEPATITIS [None]
  - PANIC DISORDER [None]
